FAERS Safety Report 18671606 (Version 7)
Quarter: 2023Q1

REPORT INFORMATION
  Report Type: Report from Study
  Country: CA (occurrence: CA)
  Receive Date: 20201228
  Receipt Date: 20230111
  Transmission Date: 20230418
  Serious: Yes (Death, Other)
  Sender: FDA-Public Use
  Company Number: CA-SHIRE-CA201917438

PATIENT
  Age: 61 Year
  Sex: Male
  Weight: 70.3 kg

DRUGS (33)
  1. TEDUGLUTIDE [Suspect]
     Active Substance: TEDUGLUTIDE
     Indication: Short-bowel syndrome
     Dosage: 3.7 MILLIGRAM, QD
     Route: 058
     Dates: start: 20170801
  2. TEDUGLUTIDE [Suspect]
     Active Substance: TEDUGLUTIDE
     Indication: Short-bowel syndrome
     Dosage: 3.7 MILLIGRAM, QD
     Route: 058
     Dates: start: 20170801
  3. TEDUGLUTIDE [Suspect]
     Active Substance: TEDUGLUTIDE
     Indication: Short-bowel syndrome
     Dosage: 3.7 MILLIGRAM, QD
     Route: 058
     Dates: start: 20170801
  4. TEDUGLUTIDE [Suspect]
     Active Substance: TEDUGLUTIDE
     Indication: Short-bowel syndrome
     Dosage: 3.7 MILLIGRAM, QD
     Route: 058
     Dates: start: 20170801
  5. TEDUGLUTIDE [Suspect]
     Active Substance: TEDUGLUTIDE
     Dosage: 3.7 MILLIGRAM, QD
     Route: 058
     Dates: start: 20170801
  6. TEDUGLUTIDE [Suspect]
     Active Substance: TEDUGLUTIDE
     Dosage: 3.7 MILLIGRAM, QD
     Route: 058
     Dates: start: 20170801
  7. TEDUGLUTIDE [Suspect]
     Active Substance: TEDUGLUTIDE
     Dosage: 3.7 MILLIGRAM, QD
     Route: 058
     Dates: start: 20170801
  8. TEDUGLUTIDE [Suspect]
     Active Substance: TEDUGLUTIDE
     Dosage: 3.7 MILLIGRAM, QD
     Route: 058
     Dates: start: 20170801
  9. TEDUGLUTIDE [Suspect]
     Active Substance: TEDUGLUTIDE
     Dosage: 3.7 MILLIGRAM, QD
     Route: 058
     Dates: start: 20170801, end: 2022
  10. TEDUGLUTIDE [Suspect]
     Active Substance: TEDUGLUTIDE
     Dosage: 3.7 MILLIGRAM, QD
     Route: 058
     Dates: start: 20170801, end: 2022
  11. TEDUGLUTIDE [Suspect]
     Active Substance: TEDUGLUTIDE
     Dosage: 3.7 MILLIGRAM, QD
     Route: 058
     Dates: start: 20170801, end: 2022
  12. TEDUGLUTIDE [Suspect]
     Active Substance: TEDUGLUTIDE
     Dosage: 3.7 MILLIGRAM, QD
     Route: 058
     Dates: start: 20170801, end: 2022
  13. MAGNESIUM [Concomitant]
     Active Substance: MAGNESIUM
     Indication: Product used for unknown indication
     Dosage: 30 MILLILITER, TID
     Route: 065
  14. VITAMIN A ACETATE [Concomitant]
     Active Substance: VITAMIN A ACETATE
     Indication: Product used for unknown indication
     Dosage: UNK
     Route: 065
  15. VIT E [TOCOPHEROL] [Concomitant]
     Indication: Product used for unknown indication
     Dosage: UNK
     Route: 065
  16. LOPERAMIDE HYDROCHLORIDE [Concomitant]
     Active Substance: LOPERAMIDE HYDROCHLORIDE
     Indication: Product used for unknown indication
     Dosage: 5 MILLIGRAM, QID
     Route: 065
  17. CALCIUM [Concomitant]
     Active Substance: CALCIUM
     Indication: Product used for unknown indication
     Dosage: 500 MILLIGRAM, QD
     Route: 048
  18. PANTOPRAZOLE [Concomitant]
     Active Substance: PANTOPRAZOLE
     Indication: Product used for unknown indication
     Dosage: 40 MILLIGRAM, QD
     Route: 065
  19. VITAMIN D NOS [Concomitant]
     Active Substance: VITAMIN D NOS
     Indication: Product used for unknown indication
     Dosage: 10000 INTERNATIONAL UNIT, BID
     Route: 048
  20. SYNTHROID [Concomitant]
     Active Substance: LEVOTHYROXINE SODIUM
     Indication: Product used for unknown indication
     Dosage: 125 MICROGRAM, QD
     Route: 048
  21. METRONIDAZOLE [Concomitant]
     Active Substance: METRONIDAZOLE
     Indication: Product used for unknown indication
     Dosage: 250 MILLIGRAM, BID
     Route: 065
  22. METRONIDAZOLE [Concomitant]
     Active Substance: METRONIDAZOLE
     Dosage: 500 MILLIGRAM, BID
     Route: 065
  23. PHYTONADIONE [Concomitant]
     Active Substance: PHYTONADIONE
     Indication: Product used for unknown indication
     Dosage: 35 MILLILITER, 2/WEEK
     Route: 065
  24. ANDROGEL [Concomitant]
     Active Substance: TESTOSTERONE
     Indication: Product used for unknown indication
     Dosage: 2 DOSAGE FORM, QD
     Route: 065
  25. DOXYCYCLINE HYDROCHLORIDE [Concomitant]
     Active Substance: DOXYCYCLINE HYDROCHLORIDE
     Indication: Product used for unknown indication
     Dosage: 100 MILLIGRAM, QD
     Route: 065
  26. SODIUM PHOSPHATE [Concomitant]
     Active Substance: SODIUM PHOSPHATE
     Indication: Product used for unknown indication
     Dosage: 1 DOSAGE FORM, QD
     Route: 065
  27. CIPROFLOXACIN [Concomitant]
     Active Substance: CIPROFLOXACIN
     Indication: Product used for unknown indication
     Dosage: 500 MILLIGRAM
     Route: 065
  28. FOLIC ACID [Concomitant]
     Active Substance: FOLIC ACID
     Indication: Product used for unknown indication
     Dosage: UNK
     Route: 065
     Dates: start: 20170907
  29. PREDNISONE [Concomitant]
     Active Substance: PREDNISONE
     Indication: Product used for unknown indication
     Dosage: 5 MILLIGRAM
     Route: 065
  30. VITAMIN B6 [Concomitant]
     Active Substance: PYRIDOXINE HYDROCHLORIDE
     Indication: Product used for unknown indication
     Dosage: 50 MILLIGRAM, QD
     Route: 048
  31. SULFASALAZINE [Concomitant]
     Active Substance: SULFASALAZINE
     Indication: Arthritis
     Dosage: 1000 MILLIGRAM, BID
     Route: 065
     Dates: end: 201709
  32. SANDOZ IRON [Concomitant]
     Dosage: UNK UNK, MONTHLY
     Route: 065
  33. VITAMIN B12 [Concomitant]
     Active Substance: CYANOCOBALAMIN
     Dosage: UNK UNK, MONTHLY
     Route: 030
     Dates: start: 20190521

REACTIONS (10)
  - Death [Fatal]
  - Urinary tract infection [Not Recovered/Not Resolved]
  - Renal impairment [Not Recovered/Not Resolved]
  - Weight decreased [Unknown]
  - Blood urine present [Recovered/Resolved]
  - Dysuria [Recovered/Resolved]
  - Anaemia [Not Recovered/Not Resolved]
  - Vitamin B complex deficiency [Unknown]
  - Haemoglobin decreased [Not Recovered/Not Resolved]
  - Muscle spasms [Not Recovered/Not Resolved]

NARRATIVE: CASE EVENT DATE: 20191101
